FAERS Safety Report 10418253 (Version 1)
Quarter: 2014Q3

REPORT INFORMATION
  Report Type: Spontaneous
  Country: US (occurrence: None)
  Receive Date: 20140828
  Receipt Date: 20140828
  Transmission Date: 20150326
  Serious: Yes (Hospitalization)
  Sender: FDA-Public Use
  Company Number: None

PATIENT
  Age: 75 Year
  Sex: Female
  Weight: 78.45 kg

DRUGS (4)
  1. CARBOPLATIN. [Suspect]
     Active Substance: CARBOPLATIN
  2. ASPIRIN. [Concomitant]
     Active Substance: ASPIRIN
  3. TAXOL [Suspect]
     Active Substance: PACLITAXEL
  4. BEVACIZUMAB (RHUMAB VEGF) (704865) [Suspect]
     Active Substance: BEVACIZUMAB

REACTIONS (8)
  - Abdominal pain [None]
  - Diarrhoea [None]
  - Colitis [None]
  - Large intestine perforation [None]
  - Pelvic abscess [None]
  - Asthenia [None]
  - Bladder prolapse [None]
  - Syncope [None]

NARRATIVE: CASE EVENT DATE: 20140804
